FAERS Safety Report 7536539-X (Version None)
Quarter: 2011Q2

REPORT INFORMATION
  Report Type: 
  Country: None (occurrence: None)
  Receive Date: 20110609
  Receipt Date: 20110426
  Transmission Date: 20111010
  Serious: Yes (Death, Other)
  Sender: FDA-Public Use
  Company Number: US-BAYER-2011-006861

PATIENT
  Age: 75 Year
  Sex: Female
  Weight: 57.143 kg

DRUGS (30)
  1. HYDROCHLOROTHIAZIDE [Concomitant]
     Indication: PRODUCT USED FOR UNKNOWN INDICATION
     Dosage: 12.5 UNK
     Route: 048
     Dates: start: 20011218
  2. SEPTRA [Concomitant]
     Indication: PRODUCT USED FOR UNKNOWN INDICATION
     Dosage: UNK
     Route: 048
     Dates: start: 20031112
  3. CEPHALEXIN [Concomitant]
     Indication: PRODUCT USED FOR UNKNOWN INDICATION
     Dosage: 250 MG, UNK
     Route: 048
     Dates: start: 20010906
  4. AMIODARONE HCL [Concomitant]
     Indication: PRODUCT USED FOR UNKNOWN INDICATION
     Dosage: 150 MG, UNK
     Route: 042
     Dates: start: 20040701, end: 20040701
  5. AMIODARONE HCL [Concomitant]
     Dosage: 1 MG, UNK
     Route: 042
     Dates: start: 20040701, end: 20040701
  6. PROTAMINE SULFATE [Concomitant]
     Dosage: 100 MG, UNK
     Route: 042
     Dates: start: 20040701, end: 20040701
  7. TRASYLOL [Suspect]
     Dosage: 50 ML, Q1HR
     Route: 042
     Dates: start: 20040701, end: 20040701
  8. ACETYLSALICYLIC ACID SRT [Concomitant]
     Indication: PRODUCT USED FOR UNKNOWN INDICATION
     Dosage: 81 G, UNK
     Route: 048
     Dates: start: 20011218
  9. PAVULON [Concomitant]
     Indication: PRODUCT USED FOR UNKNOWN INDICATION
     Dosage: UNK
     Route: 042
     Dates: start: 20040701, end: 20040701
  10. PROTAMINE SULFATE [Concomitant]
     Indication: PRODUCT USED FOR UNKNOWN INDICATION
     Dosage: 260 MG, UNK
     Route: 042
     Dates: start: 20040701, end: 20040701
  11. XANAX [Concomitant]
     Indication: ANXIETY
     Dosage: 0.25 UNK
     Route: 048
     Dates: start: 19990315
  12. FENTANYL [Concomitant]
     Indication: PRODUCT USED FOR UNKNOWN INDICATION
     Dosage: UNK
     Route: 042
     Dates: start: 20040701, end: 20040701
  13. CALCIUM CHLORIDE [Concomitant]
     Indication: PRODUCT USED FOR UNKNOWN INDICATION
     Dosage: 2 G, UNK
     Route: 042
     Dates: start: 20040701, end: 20040701
  14. TRASYLOL [Suspect]
     Indication: CORONARY ARTERY BYPASS
     Dosage: 1 ML (TEST DOSE), UNK
     Route: 042
     Dates: start: 20040701, end: 20040701
  15. RED BLOOD CELLS [Concomitant]
     Indication: PRODUCT USED FOR UNKNOWN INDICATION
     Dosage: 4 U, UNK
     Dates: start: 20040701
  16. VANCOMYCIN [Concomitant]
     Indication: PRODUCT USED FOR UNKNOWN INDICATION
     Dosage: 1 G, UNK
     Route: 042
     Dates: start: 20040701, end: 20040701
  17. FENTANYL [Concomitant]
  18. HEPARIN [Concomitant]
     Dosage: 3 MCG/KG/MIN UNK
     Route: 042
     Dates: start: 20040701, end: 20040701
  19. BAYCOL [Concomitant]
     Indication: PRODUCT USED FOR UNKNOWN INDICATION
     Dosage: 0.4 MG, UNK
     Route: 048
     Dates: start: 20001218
  20. VERSED [Concomitant]
     Indication: PRODUCT USED FOR UNKNOWN INDICATION
     Dosage: 10 UNK
     Route: 042
     Dates: start: 20040701, end: 20040701
  21. LASIX [Concomitant]
     Indication: PRODUCT USED FOR UNKNOWN INDICATION
     Dosage: 40 MG, UNK
     Route: 042
     Dates: start: 20040701, end: 20040701
  22. TRASYLOL [Suspect]
     Dosage: 204 ML, UNK
     Route: 042
     Dates: start: 20040701, end: 20040701
  23. ZOCOR [Concomitant]
     Indication: BLOOD CHOLESTEROL INCREASED
     Dosage: UNK
     Route: 048
     Dates: start: 20000623, end: 20001218
  24. HEPARIN [Concomitant]
     Indication: PRODUCT USED FOR UNKNOWN INDICATION
     Dosage: 18/KG UNK
     Route: 042
     Dates: start: 20040701, end: 20040701
  25. CONTRAST MEDIA [Concomitant]
     Indication: CATHETERISATION CARDIAC
     Dosage: UNK
     Dates: start: 20040701
  26. LIPITOR [Concomitant]
     Indication: BLOOD CHOLESTEROL INCREASED
     Dosage: 20 MG, UNK
     Route: 048
     Dates: start: 20011218
  27. KEFLEX [Concomitant]
     Indication: SINUSITIS
     Dosage: 250 MG, UNK
     Route: 048
     Dates: start: 20001228
  28. LIDOCAINE [Concomitant]
     Indication: PRODUCT USED FOR UNKNOWN INDICATION
     Dosage: 100 MG, UNK
     Route: 042
     Dates: start: 20040701, end: 20040701
  29. TRASYLOL [Suspect]
     Dosage: 200 ML (LOADING DOSE), UNK
     Route: 042
     Dates: start: 20040701, end: 20040701
  30. SUCCINYLCHOLINE CHLORIDE [Concomitant]
     Indication: PRODUCT USED FOR UNKNOWN INDICATION
     Dosage: UNK
     Route: 042
     Dates: start: 20040701, end: 20040701

REACTIONS (12)
  - STRESS [None]
  - RENAL INJURY [None]
  - EMOTIONAL DISTRESS [None]
  - ANXIETY [None]
  - MULTI-ORGAN FAILURE [None]
  - RENAL FAILURE [None]
  - RENAL IMPAIRMENT [None]
  - UNEVALUABLE EVENT [None]
  - INJURY [None]
  - CEREBROVASCULAR ACCIDENT [None]
  - FEAR [None]
  - PAIN [None]
